FAERS Safety Report 21691715 (Version 3)
Quarter: 2023Q1

REPORT INFORMATION
  Report Type: Report from Study
  Country: JP (occurrence: JP)
  Receive Date: 20221207
  Receipt Date: 20230113
  Transmission Date: 20230417
  Serious: Yes (Hospitalization)
  Sender: FDA-Public Use
  Company Number: JP-CHUGAI-2022047845

PATIENT
  Age: 66 Year
  Sex: Female
  Weight: 40.6 kg

DRUGS (14)
  1. ATEZOLIZUMAB [Suspect]
     Active Substance: ATEZOLIZUMAB
     Indication: Hormone receptor positive breast cancer
     Dosage: 840 MILLIGRAM, DAY1, 15
     Route: 041
     Dates: start: 20221110
  2. ATEZOLIZUMAB [Suspect]
     Active Substance: ATEZOLIZUMAB
     Indication: HER2 negative breast cancer
  3. BEVACIZUMAB [Suspect]
     Active Substance: BEVACIZUMAB
     Indication: Hormone receptor positive breast cancer
     Dosage: 10 MILLIGRAM/KILOGRAM, DAY1, 15
     Route: 041
     Dates: start: 20221110
  4. BEVACIZUMAB [Suspect]
     Active Substance: BEVACIZUMAB
     Indication: HER2 negative breast cancer
  5. PACLITAXEL [Suspect]
     Active Substance: PACLITAXEL
     Indication: Hormone receptor positive breast cancer
     Dosage: 90 MILLIGRAM/SQ. METER, DAY1, 8, 15
     Route: 042
     Dates: start: 20221110
  6. PACLITAXEL [Suspect]
     Active Substance: PACLITAXEL
     Indication: HER2 negative breast cancer
  7. DENOSUMAB [Concomitant]
     Active Substance: DENOSUMAB
     Indication: Hormone receptor positive breast cancer
     Dosage: 120 MILLIGRAM, ONCE/4WEEKS
     Route: 065
     Dates: start: 20210513
  8. DENOSUMAB [Concomitant]
     Active Substance: DENOSUMAB
     Indication: HER2 negative breast cancer
  9. BROTIZOLAM [Concomitant]
     Active Substance: BROTIZOLAM
     Indication: Insomnia
     Dosage: 0.25 MILLIGRAM, QD
     Route: 048
     Dates: start: 20170427
  10. LEVOTHYROXINE SODIUM [Concomitant]
     Active Substance: LEVOTHYROXINE SODIUM
     Indication: Hypothyroidism
     Dosage: 50 MILLIGRAM, QD
     Route: 048
     Dates: start: 20210701
  11. FAMOTIDINE [Concomitant]
     Active Substance: FAMOTIDINE
     Indication: Prophylaxis
     Dosage: 20 MILLIGRAM, QD
     Route: 042
     Dates: start: 20221110
  12. DEXAMETHASONE SODIUM PHOSPHATE [Concomitant]
     Active Substance: DEXAMETHASONE SODIUM PHOSPHATE
     Indication: Prophylaxis
     Dosage: 6.6 MG/2 ML, QD
     Route: 042
     Dates: start: 20221110
  13. CHLORPHENIRAMINE MALEATE [Concomitant]
     Active Substance: CHLORPHENIRAMINE MALEATE
     Indication: Prophylaxis
     Dosage: 10 MILLIGRAM, QD
     Route: 042
     Dates: start: 20221110
  14. LOXOPROFEN SODIUM [Concomitant]
     Active Substance: LOXOPROFEN SODIUM
     Indication: Pain
     Dosage: 100 MILLIGRAM, PRN
     Route: 061
     Dates: start: 20210715

REACTIONS (1)
  - Decreased appetite [Recovered/Resolved]

NARRATIVE: CASE EVENT DATE: 20221114
